FAERS Safety Report 18913124 (Version 2)
Quarter: 2021Q3

REPORT INFORMATION
  Report Type: Report from Study
  Country: None (occurrence: CA)
  Receive Date: 20210219
  Receipt Date: 20210702
  Transmission Date: 20211014
  Serious: Yes (Death, Hospitalization, Other)
  Sender: FDA-Public Use
  Company Number: CA-ABBVIE-21K-028-3780540-00

PATIENT
  Age: 81 Year
  Sex: Female

DRUGS (6)
  1. METOPROLOL. [Concomitant]
     Active Substance: METOPROLOL
     Indication: ATRIAL FIBRILLATION
     Route: 048
     Dates: end: 20210202
  2. VENCLEXTA [Suspect]
     Active Substance: VENETOCLAX
     Indication: ACUTE MYELOID LEUKAEMIA
     Route: 048
     Dates: start: 20201215, end: 202012
  3. VENCLEXTA [Suspect]
     Active Substance: VENETOCLAX
     Route: 048
     Dates: start: 20201221, end: 20210202
  4. ASPIRIN. [Concomitant]
     Active Substance: ASPIRIN
     Indication: CORONARY ARTERY DISEASE
     Route: 048
     Dates: end: 20210202
  5. AMLODIPINE [Concomitant]
     Active Substance: AMLODIPINE BESYLATE
     Indication: HYPERTENSION
     Route: 048
     Dates: end: 20210202
  6. RAMIPRIL. [Concomitant]
     Active Substance: RAMIPRIL
     Indication: HYPERTENSION
     Route: 048
     Dates: end: 20210202

REACTIONS (38)
  - Septic shock [Fatal]
  - Pneumonitis [Fatal]
  - Aortic thrombosis [Unknown]
  - Aortic arteriosclerosis [Unknown]
  - Ejection fraction decreased [Unknown]
  - Febrile neutropenia [Unknown]
  - Sinus tachycardia [Not Recovered/Not Resolved]
  - Pulse abnormal [Unknown]
  - Red cell distribution width decreased [Not Recovered/Not Resolved]
  - Cerebral ischaemia [Unknown]
  - Myocardial infarction [Unknown]
  - Hypokalaemia [Recovered/Resolved]
  - Neutrophil count decreased [Unknown]
  - Altered state of consciousness [Unknown]
  - Hypotension [Not Recovered/Not Resolved]
  - Cytopenia [Unknown]
  - Lung infiltration [Unknown]
  - Meningitis [Unknown]
  - Carotid artery stenosis [Unknown]
  - Pulmonary amyloidosis [Unknown]
  - Left ventricular dysfunction [Unknown]
  - Hypoglycaemia [Unknown]
  - Mean cell haemoglobin concentration decreased [Not Recovered/Not Resolved]
  - Haemoglobin decreased [Not Recovered/Not Resolved]
  - Red blood cell count decreased [Not Recovered/Not Resolved]
  - Cardiac arrest [Unknown]
  - Respiratory distress [Unknown]
  - Acute kidney injury [Unknown]
  - Metabolic acidosis [Unknown]
  - Chills [Unknown]
  - Feeling cold [Unknown]
  - White blood cell count decreased [Not Recovered/Not Resolved]
  - Cerebrovascular accident [Fatal]
  - Multiple organ dysfunction syndrome [Fatal]
  - Cerebral artery occlusion [Unknown]
  - Oxygen saturation decreased [Unknown]
  - Heart sounds abnormal [Unknown]
  - Critical illness [Not Recovered/Not Resolved]

NARRATIVE: CASE EVENT DATE: 20201221
